FAERS Safety Report 9137279 (Version 1)
Quarter: 2013Q1

REPORT INFORMATION
  Report Type: Spontaneous
  Country: US (occurrence: US)
  Receive Date: 20130219
  Receipt Date: 20130219
  Transmission Date: 20140127
  Serious: No
  Sender: FDA-Public Use
  Company Number: US-BRISTOL-MYERS SQUIBB COMPANY-16492936

PATIENT
  Age: 65 Year
  Sex: Female

DRUGS (4)
  1. ABATACEPT SUBQ INJECTION 125MG/ML [Suspect]
     Dosage: STARTED SINCE ONE AND HALF MONTH
  2. PREDNISONE [Concomitant]
  3. ATIVAN [Concomitant]
  4. VICODIN [Concomitant]

REACTIONS (1)
  - Pain in extremity [Unknown]
